FAERS Safety Report 4629887-4 (Version None)
Quarter: 2005Q2

REPORT INFORMATION
  Report Type: 
  Country: None (occurrence: None)
  Receive Date: 20050406
  Receipt Date: 20050321
  Transmission Date: 20051028
  Serious: Yes (Hospitalization)
  Sender: FDA-Public Use
  Company Number: FR_050306091

PATIENT
  Age: 65 Year
  Sex: Male

DRUGS (3)
  1. GEMZAR [Suspect]
     Indication: NON-SMALL CELL LUNG CANCER
     Dosage: 1250 MG/M2 OTHER
     Route: 050
     Dates: start: 20050319
  2. COTAREG [Concomitant]
  3. ZANIDIP (LERCANIDIPINE HYDROCHLORIDE) [Concomitant]

REACTIONS (6)
  - AMNESIA [None]
  - ARRHYTHMIA [None]
  - FALL [None]
  - ORTHOSTATIC HYPOTENSION [None]
  - SYNCOPE [None]
  - URINARY INCONTINENCE [None]
